FAERS Safety Report 10230623 (Version 4)
Quarter: 2014Q3

REPORT INFORMATION
  Report Type: Spontaneous
  Country: BR (occurrence: BR)
  Receive Date: 20140611
  Receipt Date: 20140707
  Transmission Date: 20150326
  Serious: Yes (Death)
  Sender: FDA-Public Use
  Company Number: BR-PFIZER INC-2014127987

PATIENT
  Sex: Male

DRUGS (1)
  1. SUTENT [Suspect]
     Active Substance: SUNITINIB MALATE
     Indication: CLEAR CELL RENAL CELL CARCINOMA
     Dosage: 50 MG DAILY (CYCLE 2:1)

REACTIONS (5)
  - Thrombocytopenia [Recovered/Resolved]
  - Sepsis [Fatal]
  - Disease progression [Fatal]
  - Clear cell renal cell carcinoma [Fatal]
  - Pneumonia [Fatal]
